FAERS Safety Report 15626272 (Version 1)
Quarter: 2018Q4

REPORT INFORMATION
  Report Type: Spontaneous
  Country: US (occurrence: US)
  Receive Date: 20181116
  Receipt Date: 20181116
  Transmission Date: 20190205
  Serious: Yes (Other)
  Sender: FDA-Public Use
  Company Number: US-SA-2017SA265935

PATIENT
  Age: 61 Year
  Sex: Female
  Weight: 83 kg

DRUGS (4)
  1. TAXOTERE [Suspect]
     Active Substance: DOCETAXEL
     Indication: BREAST CANCER
     Dosage: 140 MG,Q3W
     Route: 042
     Dates: start: 20080807, end: 20080807
  2. TAXOTERE [Suspect]
     Active Substance: DOCETAXEL
     Dosage: 140 MG,Q3W
     Route: 042
     Dates: start: 20081120, end: 20081120
  3. NEOSAR [Concomitant]
     Active Substance: CYCLOPHOSPHAMIDE
  4. DOXORUBICIN [Concomitant]
     Active Substance: DOXORUBICIN

REACTIONS (2)
  - Psychological trauma [Unknown]
  - Alopecia [Recovering/Resolving]

NARRATIVE: CASE EVENT DATE: 200808
